FAERS Safety Report 18174085 (Version 1)
Quarter: 2020Q3

REPORT INFORMATION
  Report Type: Spontaneous
  Country: US (occurrence: US)
  Receive Date: 20200819
  Receipt Date: 20200819
  Transmission Date: 20201103
  Serious: Yes (Hospitalization, Other)
  Sender: FDA-Public Use
  Company Number: None

PATIENT
  Age: 63 Year
  Sex: Female
  Weight: 64.4 kg

DRUGS (1)
  1. DIVALPROEX SODIUM DR [Suspect]
     Active Substance: DIVALPROEX SODIUM
     Indication: AFFECTIVE DISORDER
     Route: 048
     Dates: start: 20191230, end: 20200522

REACTIONS (6)
  - Head injury [None]
  - Skin abrasion [None]
  - Nodule [None]
  - Contusion [None]
  - Dizziness [None]
  - Fall [None]

NARRATIVE: CASE EVENT DATE: 20200515
